FAERS Safety Report 13248578 (Version 1)
Quarter: 2017Q1

REPORT INFORMATION
  Report Type: Spontaneous
  Country: US (occurrence: US)
  Receive Date: 20170218
  Receipt Date: 20170218
  Transmission Date: 20170428
  Serious: No
  Sender: FDA-Public Use
  Company Number: US-ALLERGAN-1659833US

PATIENT
  Age: 50 Year
  Sex: Female

DRUGS (1)
  1. RESTASIS [Suspect]
     Active Substance: CYCLOSPORINE
     Indication: DRY EYE
     Dosage: UNK
     Route: 047
     Dates: start: 2015

REACTIONS (5)
  - Ocular hyperaemia [Recovering/Resolving]
  - Eye discharge [Unknown]
  - Conjunctivitis [Unknown]
  - Drug dose omission [Unknown]
  - Eye pruritus [Unknown]

NARRATIVE: CASE EVENT DATE: 201604
